FAERS Safety Report 21702333 (Version 1)
Quarter: 2022Q4

REPORT INFORMATION
  Report Type: Report from Study
  Country: US (occurrence: US)
  Receive Date: 20221208
  Receipt Date: 20221208
  Transmission Date: 20230113
  Serious: No
  Sender: FDA-Public Use
  Company Number: US-ABBVIE-4181266

PATIENT
  Age: 63 Year
  Sex: Female
  Weight: 58.966 kg

DRUGS (3)
  1. HUMIRA [Suspect]
     Active Substance: ADALIMUMAB
     Indication: Scleritis
     Dosage: STRENGTH 40 MG
     Route: 058
     Dates: start: 202208
  2. PRILOSEC [Concomitant]
     Active Substance: OMEPRAZOLE MAGNESIUM
     Indication: Gastrooesophageal reflux disease
  3. NAPROXEN [Concomitant]
     Active Substance: NAPROXEN
     Indication: Scleritis

REACTIONS (2)
  - Off label use [Not Recovered/Not Resolved]
  - Device use error [Not Recovered/Not Resolved]

NARRATIVE: CASE EVENT DATE: 20220801
